FAERS Safety Report 13240796 (Version 2)
Quarter: 2017Q2

REPORT INFORMATION
  Report Type: Spontaneous
  Country: DE (occurrence: DE)
  Receive Date: 20170216
  Receipt Date: 20170518
  Transmission Date: 20170830
  Serious: Yes (Death, Other)
  Sender: FDA-Public Use
  Company Number: DE-AMGEN-DEUSP2017024680

PATIENT
  Age: 8 Year
  Sex: Female

DRUGS (6)
  1. BLINCYTO [Suspect]
     Active Substance: BLINATUMOMAB
     Indication: ACUTE LYMPHOCYTIC LEUKAEMIA
     Dosage: 5 MUG/KG, UNK
     Route: 065
  2. ALEMTUZUMAB [Concomitant]
     Active Substance: ALEMTUZUMAB
     Dosage: UNK
  3. CYCLOSPORIN A [Concomitant]
     Active Substance: CYCLOSPORINE
     Dosage: UNK
  4. BLINCYTO [Suspect]
     Active Substance: BLINATUMOMAB
     Dosage: 15 MUG/KG, UNK
     Route: 065
  5. BLINCYTO [Suspect]
     Active Substance: BLINATUMOMAB
     Dosage: 15 MUG/KG, UNK
     Route: 065
  6. VP-16 [Concomitant]
     Active Substance: ETOPOSIDE
     Dosage: UNK

REACTIONS (2)
  - Graft versus host disease in skin [Unknown]
  - Myeloid leukaemia [Fatal]
